FAERS Safety Report 17627136 (Version 1)
Quarter: 2020Q2

REPORT INFORMATION
  Report Type: Spontaneous
  Country: US (occurrence: US)
  Receive Date: 20200405
  Receipt Date: 20200405
  Transmission Date: 20200713
  Serious: No
  Sender: FDA-Public Use
  Company Number: US-ZYDUS-039856

PATIENT

DRUGS (1)
  1. LAMOTRIGINE. [Suspect]
     Active Substance: LAMOTRIGINE
     Indication: SEIZURE
     Route: 048

REACTIONS (5)
  - Product solubility abnormal [Unknown]
  - Product use complaint [Unknown]
  - Regurgitation [Unknown]
  - Product taste abnormal [Unknown]
  - Product size issue [Unknown]
